FAERS Safety Report 12289093 (Version 2)
Quarter: 2016Q3

REPORT INFORMATION
  Report Type: Spontaneous
  Country: US (occurrence: US)
  Receive Date: 20160421
  Receipt Date: 20160725
  Transmission Date: 20161109
  Serious: No
  Sender: FDA-Public Use
  Company Number: US-AUROBINDO-AUR-APU-2016-04709

PATIENT
  Sex: Male

DRUGS (1)
  1. VALSARTAN TABLETS [Suspect]
     Active Substance: VALSARTAN
     Indication: PRODUCT USED FOR UNKNOWN INDICATION
     Route: 065

REACTIONS (2)
  - Product substitution issue [Recovered/Resolved]
  - Wrong technique in product usage process [Recovered/Resolved]
